FAERS Safety Report 12339804 (Version 1)
Quarter: 2016Q2

REPORT INFORMATION
  Report Type: Spontaneous
  Country: US (occurrence: US)
  Receive Date: 20160506
  Receipt Date: 20160506
  Transmission Date: 20160815
  Serious: No
  Sender: FDA-Public Use
  Company Number: US-009507513-1605USA002242

PATIENT
  Age: 52 Year
  Sex: Male

DRUGS (3)
  1. XANAX [Concomitant]
     Active Substance: ALPRAZOLAM
  2. DULERA [Suspect]
     Active Substance: FORMOTEROL FUMARATE DIHYDRATE\MOMETASONE FUROATE
     Indication: ASTHMA
     Dosage: 2 PUFFS AM/PM
     Route: 055
     Dates: start: 2014
  3. SINGULAIR [Concomitant]
     Active Substance: MONTELUKAST SODIUM
     Route: 048

REACTIONS (3)
  - Product quality issue [Unknown]
  - Asthma [Unknown]
  - Underdose [Unknown]

NARRATIVE: CASE EVENT DATE: 20160429
